FAERS Safety Report 5374132-8 (Version None)
Quarter: 2007Q2

REPORT INFORMATION
  Report Type: 
  Country: None (occurrence: None)
  Receive Date: 20070627
  Receipt Date: 20070613
  Transmission Date: 20071010
  Serious: Yes (Other)
  Sender: FDA-Public Use
  Company Number: 2007RR-08099

PATIENT
  Age: 77 Year
  Sex: Male

DRUGS (1)
  1. LORATADINE [Suspect]
     Dosage: 10 MG

REACTIONS (2)
  - DRUG HYPERSENSITIVITY [None]
  - NEPHRITIS INTERSTITIAL [None]
